FAERS Safety Report 8342244-2 (Version None)
Quarter: 2012Q2

REPORT INFORMATION
  Report Type: 
  Country: None (occurrence: None)
  Receive Date: 20120507
  Receipt Date: 20120427
  Transmission Date: 20120825
  Serious: Yes (Other)
  Sender: FDA-Public Use
  Company Number: US-AMGEN-USASP2012026893

PATIENT
  Sex: Male

DRUGS (2)
  1. ENBREL [Suspect]
     Indication: PRODUCT USED FOR UNKNOWN INDICATION
     Dosage: UNK
     Dates: end: 20120101
  2. HUMIRA [Concomitant]

REACTIONS (3)
  - LYMPHOMA [None]
  - BONE NEOPLASM [None]
  - THERAPEUTIC RESPONSE DECREASED [None]
